FAERS Safety Report 7404568-2 (Version None)
Quarter: 2011Q2

REPORT INFORMATION
  Report Type: 
  Country: None (occurrence: None)
  Receive Date: 20110411
  Receipt Date: 20110330
  Transmission Date: 20111010
  Serious: Yes (Life-Threatening, Hospitalization)
  Sender: FDA-Public Use
  Company Number: FR-BIOGENIDEC-2010BI015494

PATIENT
  Age: 37 Year
  Sex: Male

DRUGS (4)
  1. RISPERDAL [Concomitant]
  2. TYSABRI [Suspect]
     Indication: MULTIPLE SCLEROSIS
     Route: 042
     Dates: start: 20080121, end: 20091112
  3. DEPAMIDE [Concomitant]
  4. SEROPRAM [Concomitant]

REACTIONS (1)
  - DEPRESSION [None]
